FAERS Safety Report 25728559 (Version 1)
Quarter: 2025Q3

REPORT INFORMATION
  Report Type: Spontaneous
  Country: CN (occurrence: CN)
  Receive Date: 20250826
  Receipt Date: 20250826
  Transmission Date: 20251021
  Serious: Yes (Hospitalization)
  Sender: MYLAN
  Company Number: CN-MYLANLABS-2025M1072272

PATIENT
  Age: 77 Year
  Sex: Female

DRUGS (8)
  1. PANTOPRAZOLE [Suspect]
     Active Substance: PANTOPRAZOLE
     Indication: Upper gastrointestinal haemorrhage
  2. PANTOPRAZOLE [Suspect]
     Active Substance: PANTOPRAZOLE
     Route: 065
  3. PANTOPRAZOLE [Suspect]
     Active Substance: PANTOPRAZOLE
     Route: 065
  4. PANTOPRAZOLE [Suspect]
     Active Substance: PANTOPRAZOLE
  5. SOMATOSTATIN [Concomitant]
     Active Substance: SOMATOSTATIN
     Indication: Upper gastrointestinal haemorrhage
  6. SOMATOSTATIN [Concomitant]
     Active Substance: SOMATOSTATIN
     Route: 065
  7. SOMATOSTATIN [Concomitant]
     Active Substance: SOMATOSTATIN
     Route: 065
  8. SOMATOSTATIN [Concomitant]
     Active Substance: SOMATOSTATIN

REACTIONS (2)
  - Clostridium difficile infection [Recovered/Resolved]
  - Lower gastrointestinal haemorrhage [Recovering/Resolving]
